FAERS Safety Report 11927204 (Version 4)
Quarter: 2016Q2

REPORT INFORMATION
  Report Type: Report from Study
  Country: US (occurrence: US)
  Receive Date: 20160119
  Receipt Date: 20160421
  Transmission Date: 20160815
  Serious: Yes (Death, Hospitalization)
  Sender: FDA-Public Use
  Company Number: US-BAYER-2015-439243

PATIENT
  Age: 78 Year
  Sex: Female
  Weight: 57 kg

DRUGS (2)
  1. ADEMPAS [Suspect]
     Active Substance: RIOCIGUAT
     Indication: PULMONARY HYPERTENSION
     Dosage: 2.5 MG, TID
     Route: 048
  2. ADEMPAS [Suspect]
     Active Substance: RIOCIGUAT
     Indication: PULMONARY HYPERTENSION
     Dosage: 2.5 MG, TID
     Route: 048
     Dates: start: 20140210

REACTIONS (6)
  - Hospitalisation [Unknown]
  - Liver function test abnormal [Fatal]
  - Hepatic function abnormal [Fatal]
  - Malaise [Unknown]
  - Influenza [Recovering/Resolving]
  - Acute hepatic failure [Fatal]

NARRATIVE: CASE EVENT DATE: 2015
